FAERS Safety Report 7129297-4 (Version None)
Quarter: 2010Q4

REPORT INFORMATION
  Report Type: 
  Country: None (occurrence: None)
  Receive Date: 20101130
  Receipt Date: 20101117
  Transmission Date: 20110411
  Serious: Yes (Other)
  Sender: FDA-Public Use
  Company Number: US-PFIZER INC-2010154228

PATIENT
  Sex: Female
  Weight: 54.422 kg

DRUGS (4)
  1. PRISTIQ [Suspect]
     Indication: BACK PAIN
     Dosage: 50 MG, 1X/DAY
     Route: 048
     Dates: start: 20090101
  2. FINASTERIDE [Concomitant]
     Indication: ALOPECIA
     Dosage: 2.5 MG, UNK
  3. HYDROCODONE [Concomitant]
     Indication: BACK PAIN
     Dosage: AS NEEDED
  4. CAFERGOT [Concomitant]
     Indication: HEADACHE
     Dosage: AS NEEDED

REACTIONS (4)
  - ABNORMAL DREAMS [None]
  - FATIGUE [None]
  - HYPERTENSION [None]
  - SOMNOLENCE [None]
